FAERS Safety Report 7993669-6 (Version None)
Quarter: 2011Q4

REPORT INFORMATION
  Report Type: 
  Country: None (occurrence: None)
  Receive Date: 20111219
  Receipt Date: 20111209
  Transmission Date: 20120403
  Serious: Yes (Hospitalization, Other)
  Sender: FDA-Public Use
  Company Number: US-ASTRAZENECA-2011SE73717

PATIENT
  Age: 58 Year
  Sex: Female

DRUGS (5)
  1. SEROQUEL XR [Suspect]
     Indication: BIPOLAR DISORDER
     Route: 048
  2. ADVAIR DISKUS 100/50 [Concomitant]
  3. ALBUTEROL [Concomitant]
  4. SEROQUEL XR [Suspect]
     Indication: MAJOR DEPRESSION
     Route: 048
  5. WELLBUTRIN [Concomitant]

REACTIONS (2)
  - ASTHMA [None]
  - INJURY [None]
